FAERS Safety Report 6981776-6 (Version None)
Quarter: 2010Q3

REPORT INFORMATION
  Report Type: 
  Country: None (occurrence: None)
  Receive Date: 20100914
  Receipt Date: 20091014
  Transmission Date: 20110219
  Serious: No
  Sender: FDA-Public Use
  Company Number: US-PFIZER INC-2009261772

PATIENT
  Sex: Male
  Weight: 61.2 kg

DRUGS (6)
  1. LYRICA [Suspect]
     Indication: PAIN
     Dosage: 100 MG, 3X/DAY
     Route: 048
     Dates: start: 20050101
  2. NORVASC [Concomitant]
     Indication: HYPERTENSION
     Dosage: 10 MG, 1X/DAY
  3. TOPROL-XL [Concomitant]
     Dosage: 50 MG, 1X/DAY
  4. VALIUM [Concomitant]
     Dosage: 5 MG, 1X/DAY
  5. CALCITONIN, SALMON [Concomitant]
     Indication: OSTEOPOROSIS
     Dosage: UNK
     Route: 045
  6. CRESTOR [Concomitant]
     Indication: BLOOD CHOLESTEROL INCREASED
     Dosage: UNK

REACTIONS (3)
  - BLOOD CHOLESTEROL INCREASED [None]
  - BREAST SWELLING [None]
  - DEPRESSION [None]
